FAERS Safety Report 10210061 (Version 6)
Quarter: 2014Q3

REPORT INFORMATION
  Report Type: Report from Study
  Country: CA (occurrence: CA)
  Receive Date: 20140602
  Receipt Date: 20140814
  Transmission Date: 20150326
  Serious: Yes (Hospitalization, Other)
  Sender: FDA-Public Use
  Company Number: CA-ROCHE-1311986

PATIENT
  Age: 82 Year
  Sex: Male
  Weight: 62 kg

DRUGS (16)
  1. ROSUVASTATIN [Concomitant]
     Active Substance: ROSUVASTATIN
  2. FOSAMAX [Concomitant]
     Active Substance: ALENDRONATE SODIUM
  3. CODEINE [Concomitant]
     Active Substance: CODEINE
     Route: 065
  4. PREVACID [Concomitant]
     Active Substance: LANSOPRAZOLE
  5. CANDESARTAN [Concomitant]
     Active Substance: CANDESARTAN
  6. CODEINE [Concomitant]
     Active Substance: CODEINE
     Route: 065
  7. CODEINE [Concomitant]
     Active Substance: CODEINE
     Route: 048
  8. LANTUS [Concomitant]
     Active Substance: INSULIN GLARGINE
  9. VITAMIN B12 [Concomitant]
     Active Substance: CYANOCOBALAMIN
  10. ACTEMRA [Suspect]
     Active Substance: TOCILIZUMAB
     Indication: RHEUMATOID ARTHRITIS
     Route: 042
     Dates: start: 20131024
  11. CARVEDILOL. [Concomitant]
     Active Substance: CARVEDILOL
  12. ALENDRONATE [Concomitant]
     Active Substance: ALENDRONATE SODIUM
  13. LANSOPRAZOLE. [Concomitant]
     Active Substance: LANSOPRAZOLE
  14. CRESTOR [Concomitant]
     Active Substance: ROSUVASTATIN CALCIUM
  15. ASA [Concomitant]
     Active Substance: ASPIRIN
  16. PREDNISONE. [Concomitant]
     Active Substance: PREDNISONE

REACTIONS (10)
  - Blood pressure increased [Not Recovered/Not Resolved]
  - Peripheral swelling [Not Recovered/Not Resolved]
  - Blood glucose decreased [Unknown]
  - Blood pressure increased [Recovered/Resolved]
  - Infusion related reaction [Recovering/Resolving]
  - Weight decreased [Not Recovered/Not Resolved]
  - Joint range of motion decreased [Not Recovered/Not Resolved]
  - Headache [Recovering/Resolving]
  - Loss of consciousness [Recovered/Resolved]
  - Arthralgia [Unknown]

NARRATIVE: CASE EVENT DATE: 20131121
